FAERS Safety Report 8484800-7 (Version None)
Quarter: 2012Q3

REPORT INFORMATION
  Report Type: 
  Country: None (occurrence: None)
  Receive Date: 20120703
  Receipt Date: 20120626
  Transmission Date: 20120928
  Serious: Yes (Hospitalization)
  Sender: FDA-Public Use
  Company Number: US-BAYER-2012-062790

PATIENT
  Age: 23 Year
  Sex: Female
  Weight: 65.76 kg

DRUGS (14)
  1. CEFUROXIME AXETIL [Concomitant]
     Dosage: UNK
  2. CLARITHROMYCIN [Concomitant]
     Dosage: UNK
  3. FIORICET [Concomitant]
     Dosage: UNK
  4. YASMIN [Suspect]
     Indication: PREMENSTRUAL SYNDROME
  5. MAXALT [Concomitant]
     Dosage: UNK
     Dates: start: 20060101
  6. AMBI [Concomitant]
     Dosage: UNK
  7. BENZONATATE [Concomitant]
     Dosage: UNK
  8. YAZ [Suspect]
     Indication: PREMENSTRUAL SYNDROME
     Dosage: UNK
     Dates: start: 20080501, end: 20090101
  9. NEXIUM [Concomitant]
     Dosage: UNK
  10. METHYLPREDNISOLONE [Concomitant]
     Dosage: UNK
  11. YASMIN [Suspect]
     Indication: CONTRACEPTION
     Dosage: UNK
     Dates: start: 20070701, end: 20071001
  12. YAZ [Suspect]
     Indication: CONTRACEPTION
     Dosage: UNK
     Dates: start: 20071201, end: 20080207
  13. TUSSIONEX [Concomitant]
     Dosage: UNK
  14. SERTRALINE HYDROCHLORIDE [Concomitant]
     Indication: ANXIETY
     Dosage: UNK
     Dates: start: 20070101

REACTIONS (7)
  - INJURY [None]
  - VIITH NERVE PARALYSIS [None]
  - CEREBROVASCULAR ACCIDENT [None]
  - HYPOAESTHESIA [None]
  - PAIN [None]
  - ANXIETY [None]
  - DIZZINESS [None]
